FAERS Safety Report 4776579-7 (Version None)
Quarter: 2005Q3

REPORT INFORMATION
  Report Type: 
  Country: None (occurrence: None)
  Receive Date: 20050921
  Receipt Date: 20050913
  Transmission Date: 20060218
  Serious: Yes (Other)
  Sender: FDA-Public Use
  Company Number: 2005127534

PATIENT
  Age: 73 Year
  Sex: Male
  Weight: 69.8539 kg

DRUGS (7)
  1. GLIPIZIDE [Suspect]
     Indication: DIABETES MELLITUS
     Dosage: 5 MG (5 MG 1 IN 1 D)
     Dates: start: 20040601
  2. ATENOLOL [Concomitant]
  3. IMDUR [Concomitant]
  4. PLAVIX 9CLOPIDOGREL SULFATE) [Concomitant]
  5. K-DUR 10 [Concomitant]
  6. LISINOPRIL [Concomitant]
  7. ASPIRIN [Concomitant]

REACTIONS (5)
  - BLOOD CHOLESTEROL INCREASED [None]
  - DRUG INEFFECTIVE [None]
  - MYOCARDIAL INFARCTION [None]
  - STRESS [None]
  - TENDONITIS [None]
